FAERS Safety Report 4882413-7 (Version None)
Quarter: 2006Q1

REPORT INFORMATION
  Report Type: 
  Country: None (occurrence: None)
  Receive Date: 20060117
  Receipt Date: 20060106
  Transmission Date: 20060701
  Serious: Yes (Death, Hospitalization)
  Sender: FDA-Public Use
  Company Number: TR-JNJFOC-20051105489

PATIENT
  Age: 51 Year
  Sex: Female
  Weight: 67 kg

DRUGS (6)
  1. DURAGESIC-100 [Suspect]
     Indication: CANCER PAIN
     Route: 062
  2. CEPHALOSPORIN [Concomitant]
     Route: 065
  3. METACLOPROMIDE [Concomitant]
     Dosage: 3X1.1/7DAYS
     Route: 065
  4. ULCURAN [Concomitant]
     Dosage: 4X1/7 DAYS
     Route: 065
  5. METAMISOLE [Concomitant]
  6. TOTAL PARENTERAL NUTRITION (TPR) [Concomitant]

REACTIONS (3)
  - ADENOCARCINOMA PANCREAS [None]
  - NAUSEA [None]
  - VOMITING [None]
